FAERS Safety Report 5492901-0 (Version None)
Quarter: 2007Q4

REPORT INFORMATION
  Report Type: 
  Country: None (occurrence: None)
  Receive Date: 20071023
  Receipt Date: 20071017
  Transmission Date: 20080405
  Serious: Yes (Hospitalization, Other)
  Sender: FDA-Public Use
  Company Number: AU-AVENTIS-200719596GDDC

PATIENT
  Age: 74 Year
  Sex: Female

DRUGS (2)
  1. LANTUS [Suspect]
     Route: 058
     Dates: start: 20070401
  2. AUTOPEN INSULIN INJECTION PEN [Suspect]

REACTIONS (2)
  - HYPOGLYCAEMIA [None]
  - PNEUMONIA [None]
